FAERS Safety Report 21068539 (Version 1)
Quarter: 2022Q3

REPORT INFORMATION
  Report Type: Spontaneous
  Country: US (occurrence: None)
  Receive Date: 20220711
  Receipt Date: 20220711
  Transmission Date: 20221027
  Serious: Yes (Hospitalization)
  Sender: FDA-Public Use
  Company Number: None

PATIENT
  Age: 74 Year
  Sex: Male
  Weight: 99.6 kg

DRUGS (1)
  1. ABECMA [Suspect]
     Active Substance: IDECABTAGENE VICLEUCEL
     Indication: Plasma cell myeloma
     Dates: start: 20220425, end: 20220425

REACTIONS (5)
  - Hypoxia [None]
  - Hypotension [None]
  - Pyrexia [None]
  - Chills [None]
  - Cytokine release syndrome [None]

NARRATIVE: CASE EVENT DATE: 20220425
